FAERS Safety Report 9835936 (Version 1)
Quarter: 2014Q1

REPORT INFORMATION
  Report Type: Spontaneous
  Country: US (occurrence: US)
  Receive Date: 20140122
  Receipt Date: 20140122
  Transmission Date: 20141002
  Serious: Yes (Death)
  Sender: FDA-Public Use
  Company Number: US-RB-062672-14

PATIENT
  Age: 22 Year
  Sex: Female

DRUGS (7)
  1. BUPRENORPHINE [Suspect]
     Indication: PRODUCT USED FOR UNKNOWN INDICATION
     Dosage: UNKNOWN DOSING DETAILS; INGESTED VIA UNSPECIFIED ROUTE
     Route: 065
     Dates: end: 2012
  2. QUETIAPINE [Suspect]
     Indication: PRODUCT USED FOR UNKNOWN INDICATION
     Dosage: UNKNOWN DOSING DETAILS; INGESTED VIA UNSPECIFIED ROUTE
     Route: 065
     Dates: end: 2012
  3. CITALOPRAM [Suspect]
     Indication: PRODUCT USED FOR UNKNOWN INDICATION
     Dosage: UNKNOWN DOSING DETAILS; INGESTED VIA UNSPECIFIED ROUTE
     Route: 065
     Dates: end: 2012
  4. ALPRAZOLAM [Suspect]
     Indication: PRODUCT USED FOR UNKNOWN INDICATION
     Dosage: UNKNOWN DOSING DETAILS; INGESTED VIA UNSPECIFIED ROUTE
     Route: 065
     Dates: end: 2012
  5. ETHANOL [Suspect]
     Indication: PRODUCT USED FOR UNKNOWN INDICATION
     Dosage: UNKNOWN DOSING DETAILS; INGESTED VIA UNSPECIFIED ROUTE
     Route: 065
     Dates: end: 2012
  6. AMPHETAMINE [Suspect]
     Indication: PRODUCT USED FOR UNKNOWN INDICATION
     Dosage: UNKNOWN DOSING DETAILS; INGESTED VIA UNSPECIFIED ROUTE
     Route: 065
     Dates: end: 2012
  7. PHENYLPROPANOLAMINE [Suspect]
     Indication: PRODUCT USED FOR UNKNOWN INDICATION
     Dosage: UNKNOWN DOSING DETAILS; INGESTED VIA UNSPECIFIED ROUTE
     Route: 065
     Dates: end: 2012

REACTIONS (1)
  - Completed suicide [Fatal]
